FAERS Safety Report 19198645 (Version 1)
Quarter: 2021Q2

REPORT INFORMATION
  Report Type: Spontaneous
  Country: US (occurrence: US)
  Receive Date: 20210428
  Receipt Date: 20210428
  Transmission Date: 20210717
  Serious: Yes (Life-Threatening, Hospitalization)
  Sender: FDA-Public Use
  Company Number: None

PATIENT
  Age: 65 Year
  Sex: Female
  Weight: 58.97 kg

DRUGS (3)
  1. ALENDRONATE SODIUM (GENERIC FOR FOSAMAX) [Suspect]
     Active Substance: ALENDRONATE SODIUM
     Indication: OSTEOPOROSIS
     Dosage: ?          QUANTITY:1 PILL;?
     Route: 048
     Dates: start: 2004, end: 202011
  2. METOPROLOL. [Concomitant]
     Active Substance: METOPROLOL
  3. VITAMIN D [Concomitant]
     Active Substance: VITAMIN D NOS

REACTIONS (3)
  - Dizziness [None]
  - Chest discomfort [None]
  - Stress cardiomyopathy [None]
